FAERS Safety Report 21275236 (Version 1)
Quarter: 2022Q3

REPORT INFORMATION
  Report Type: Spontaneous
  Country: US (occurrence: US)
  Receive Date: 20220831
  Receipt Date: 20220831
  Transmission Date: 20221026
  Serious: Yes (Other)
  Sender: FDA-Public Use
  Company Number: US-AMERICAN REGENT INC-2022002495

PATIENT
  Sex: Female

DRUGS (1)
  1. ESTRADIOL VALERATE [Suspect]
     Active Substance: ESTRADIOL VALERATE
     Indication: Blood oestrogen abnormal
     Dosage: UNK
     Route: 065

REACTIONS (2)
  - Blood oestrogen abnormal [Recovered/Resolved]
  - Drug ineffective [Recovered/Resolved]
